FAERS Safety Report 25990969 (Version 1)
Quarter: 2025Q4

REPORT INFORMATION
  Report Type: Spontaneous
  Country: JP (occurrence: None)
  Receive Date: 20251103
  Receipt Date: 20251103
  Transmission Date: 20260118
  Serious: Yes (Other)
  Sender: UCB
  Company Number: JP-UCBSA-2025068293

PATIENT
  Age: 39 Year

DRUGS (5)
  1. LEVETIRACETAM [Suspect]
     Active Substance: LEVETIRACETAM
     Indication: Encephalitis autoimmune
     Dosage: 1000 MILLIGRAM PER DAY
  2. LEVETIRACETAM [Suspect]
     Active Substance: LEVETIRACETAM
     Indication: Off label use
  3. methylprednisolone pulse therapy [Concomitant]
     Indication: Encephalitis autoimmune
     Dosage: 1000 MILLIGRAM, 3X/DAY (TID)
  4. MYCOPHENOLATE MOFETIL [Concomitant]
     Active Substance: MYCOPHENOLATE MOFETIL
     Indication: Mental status changes
     Dosage: 500 MILLIGRAM PER DAY
  5. IMMUNE GLOBULIN NOS [Concomitant]
     Active Substance: IMMUNE GLOBULIN NOS
     Indication: Plasmapheresis
     Dosage: 0.4 G/KG/DAY FOR 5 DAYS

REACTIONS (2)
  - Psychiatric symptom [Unknown]
  - Off label use [Unknown]
